FAERS Safety Report 8550857-8 (Version None)
Quarter: 2012Q3

REPORT INFORMATION
  Report Type: 
  Country: None (occurrence: None)
  Receive Date: 20120730
  Receipt Date: 20120724
  Transmission Date: 20120928
  Serious: Yes (Death, Congenital Anomaly)
  Sender: FDA-Public Use
  Company Number: FR-GILEAD-2012-0058553

PATIENT
  Sex: Male

DRUGS (3)
  1. TRUVADA [Suspect]
     Indication: HIV INFECTION
     Dosage: UNK
     Route: 064
     Dates: start: 20120101
  2. NORVIR [Suspect]
     Indication: HIV INFECTION
     Dosage: UNK
     Route: 064
     Dates: start: 20120101
  3. REYATAZ [Suspect]
     Indication: HIV INFECTION
     Dosage: UNK
     Route: 064
     Dates: start: 20120101

REACTIONS (8)
  - RENAL APLASIA [None]
  - BLADDER DILATATION [None]
  - EAGLE BARRETT SYNDROME [None]
  - DYSMORPHISM [None]
  - AMNIOTIC FLUID VOLUME DECREASED [None]
  - RECTAL PERFORATION [None]
  - INTESTINAL MALROTATION [None]
  - PERSISTENT CLOACA [None]
